FAERS Safety Report 21331059 (Version 1)
Quarter: 2022Q3

REPORT INFORMATION
  Report Type: Report from Study
  Country: IN (occurrence: IN)
  Receive Date: 20220914
  Receipt Date: 20220914
  Transmission Date: 20221026
  Serious: Yes (Hospitalization, Other)
  Sender: FDA-Public Use
  Company Number: IN-BRISTOL-MYERS SQUIBB COMPANY-2022-045129

PATIENT
  Age: 76 Year
  Sex: Male
  Weight: 60 kg

DRUGS (2)
  1. NIVOLUMAB [Suspect]
     Active Substance: NIVOLUMAB
     Indication: Metastatic squamous cell carcinoma
     Dosage: 2 WEEKLY
     Route: 042
     Dates: start: 20220203
  2. NIVOLUMAB [Suspect]
     Active Substance: NIVOLUMAB
     Route: 065

REACTIONS (6)
  - Cerebrovascular accident [Unknown]
  - Asthenia [Unknown]
  - Injury [Unknown]
  - Tachycardia [Unknown]
  - Blood sodium decreased [Unknown]
  - Chest wall abscess [Unknown]

NARRATIVE: CASE EVENT DATE: 20220101
